FAERS Safety Report 13839611 (Version 2)
Quarter: 2018Q2

REPORT INFORMATION
  Report Type: Spontaneous
  Country: IT (occurrence: IT)
  Receive Date: 20170807
  Receipt Date: 20180630
  Transmission Date: 20180711
  Serious: Yes (Hospitalization)
  Sender: FDA-Public Use
  Company Number: IT-TEVA-793115ACC

PATIENT
  Age: 7 Year
  Sex: Male
  Weight: 23 kg

DRUGS (3)
  1. ETOPOSIDE. [Concomitant]
     Active Substance: ETOPOSIDE
     Indication: BONE MARROW TRANSPLANT
     Route: 042
     Dates: start: 20170701, end: 20170701
  2. RABBIT HUMAN ANTI-THYMOCYTE IMMUNOGLOBULIN [Concomitant]
     Active Substance: LAPINE T-LYMPHOCYTE IMMUNE GLOBULIN
     Indication: BONE MARROW TRANSPLANT
     Route: 042
     Dates: start: 20170701, end: 20170703
  3. VORICONAZOLE. [Suspect]
     Active Substance: VORICONAZOLE
     Indication: FUNGAL INFECTION
     Route: 048
     Dates: start: 20170523, end: 20170626

REACTIONS (2)
  - Burns first degree [Recovering/Resolving]
  - Burns second degree [Recovering/Resolving]

NARRATIVE: CASE EVENT DATE: 20170703
